FAERS Safety Report 15501067 (Version 1)
Quarter: 2018Q4

REPORT INFORMATION
  Report Type: Report from Study
  Country: CA (occurrence: CA)
  Receive Date: 20181015
  Receipt Date: 20181015
  Transmission Date: 20190205
  Serious: Yes (Other)
  Sender: FDA-Public Use
  Company Number: CA-JNJFOC-20181011346

PATIENT
  Age: 51 Year
  Sex: Male
  Weight: 95 kg

DRUGS (1)
  1. STELARA [Suspect]
     Active Substance: USTEKINUMAB
     Indication: CROHN^S DISEASE
     Route: 058

REACTIONS (4)
  - Pruritus [Unknown]
  - Cellulitis [Unknown]
  - Papule [Unknown]
  - Erythema [Unknown]

NARRATIVE: CASE EVENT DATE: 20180828
